FAERS Safety Report 18687763 (Version 2)
Quarter: 2021Q1

REPORT INFORMATION
  Report Type: Spontaneous
  Country: US (occurrence: US)
  Receive Date: 20201231
  Receipt Date: 20210308
  Transmission Date: 20210419
  Serious: Yes (Hospitalization, Other)
  Sender: FDA-Public Use
  Company Number: US-PFIZER INC-2020513457

PATIENT
  Age: 63 Year
  Sex: Female
  Weight: 91 kg

DRUGS (2)
  1. IBRANCE [Suspect]
     Active Substance: PALBOCICLIB
     Indication: BREAST CANCER FEMALE
     Dosage: 125 MG, CYCLIC (1 DAILY FOR 21 DAYS)
     Route: 048
     Dates: start: 20201016, end: 20201203
  2. IBRANCE [Suspect]
     Active Substance: PALBOCICLIB
     Dosage: 125 MG, CYCLIC (1 DAILY FOR 21 DAYS)
     Route: 048
     Dates: start: 20201016

REACTIONS (8)
  - Bruxism [Unknown]
  - Tooth loss [Unknown]
  - White blood cell count decreased [Unknown]
  - Pneumonia [Unknown]
  - COVID-19 [Unknown]
  - Renal disorder [Unknown]
  - Trismus [Unknown]
  - Liver disorder [Unknown]

NARRATIVE: CASE EVENT DATE: 202011
